FAERS Safety Report 8840469 (Version 1)
Quarter: 2012Q4

REPORT INFORMATION
  Report Type: 
  Country: US (occurrence: US)
  Receive Date: 20121015
  Receipt Date: 20121015
  Transmission Date: 20130627
  Serious: Yes (Other)
  Sender: FDA-Public Use
  Company Number: US-ROCHE-1138085

PATIENT
  Sex: Female

DRUGS (2)
  1. NUTROPIN [Suspect]
     Indication: DWARFISM
     Route: 065
     Dates: start: 19930520
  2. DEPAKOTE [Concomitant]

REACTIONS (1)
  - Convulsion [Unknown]
